FAERS Safety Report 16693434 (Version 2)
Quarter: 2019Q3

REPORT INFORMATION
  Report Type: Spontaneous
  Country: AU (occurrence: AU)
  Receive Date: 20190812
  Receipt Date: 20190905
  Transmission Date: 20191004
  Serious: Yes (Other)
  Sender: FDA-Public Use
  Company Number: AU-EMD SERONO-9109988

PATIENT
  Sex: Male
  Weight: 78 kg

DRUGS (2)
  1. MAVENCLAD [Suspect]
     Active Substance: CLADRIBINE
     Dosage: SECOND WEEK THERAPY: TOOK 20 MG ON DAYS 1 AND 2 AND 10 MG ON DAYS 3 TO 5.
     Route: 048
     Dates: start: 20190701, end: 20190705
  2. MAVENCLAD [Suspect]
     Active Substance: CLADRIBINE
     Indication: RELAPSING-REMITTING MULTIPLE SCLEROSIS
     Dosage: FIRST WEEK THERAPY: TOOK 20 MG ON DAYS 1 AND 2 AND 10 MG ON DAYS 3 TO 5.
     Route: 048
     Dates: start: 20190603, end: 20190607

REACTIONS (4)
  - Blood alkaline phosphatase increased [Recovering/Resolving]
  - Aspartate aminotransferase increased [Recovering/Resolving]
  - Gamma-glutamyltransferase increased [Recovering/Resolving]
  - Alanine aminotransferase increased [Recovering/Resolving]
